FAERS Safety Report 11845948 (Version 1)
Quarter: 2015Q4

REPORT INFORMATION
  Report Type: Spontaneous
  Country: FI (occurrence: FI)
  Receive Date: 20151217
  Receipt Date: 20151217
  Transmission Date: 20160305
  Serious: Yes (Disabling)
  Sender: FDA-Public Use
  Company Number: FI-PFIZER INC-2015442942

PATIENT
  Age: 71 Year
  Sex: Male

DRUGS (7)
  1. KALCIPOS D3 FORTE [Concomitant]
     Dosage: 500 MG/800 IU, 1X/DAY
     Route: 048
  2. MAREVAN FORTE [Concomitant]
     Active Substance: WARFARIN SODIUM
     Dosage: 5 MG, 1X/DAY
     Route: 048
  3. ANDROCUR [Interacting]
     Active Substance: CYPROTERONE ACETATE
     Indication: PROSTATE CANCER
     Dosage: 50 MG, 2X/DAY
     Route: 048
     Dates: start: 20130312
  4. CIALIS [Concomitant]
     Active Substance: TADALAFIL
     Dosage: 5 MG, 1X/DAY
     Route: 048
  5. EMCONCOR [Concomitant]
     Active Substance: BISOPROLOL FUMARATE
     Dosage: 5 MG, 1X/DAY
     Route: 048
  6. LIPITOR [Suspect]
     Active Substance: ATORVASTATIN CALCIUM
     Indication: VASCULAR OCCLUSION
     Dosage: 10 MG, 1X/DAY
     Route: 048
     Dates: start: 20140331
  7. MICARDIS [Concomitant]
     Active Substance: TELMISARTAN
     Dosage: 80 MG, 1X/DAY
     Route: 048

REACTIONS (3)
  - Drug interaction [Recovered/Resolved]
  - Loss of control of legs [Recovered/Resolved]
  - Pain in extremity [Recovered/Resolved]
